APPROVED DRUG PRODUCT: FLECAINIDE ACETATE
Active Ingredient: FLECAINIDE ACETATE
Strength: 50MG
Dosage Form/Route: TABLET;ORAL
Application: A076278 | Product #001 | TE Code: AB
Applicant: HIKMA PHARMACEUTICALS USA INC
Approved: Jan 14, 2003 | RLD: No | RS: No | Type: RX